FAERS Safety Report 16523005 (Version 1)
Quarter: 2019Q3

REPORT INFORMATION
  Report Type: Spontaneous
  Country: IT (occurrence: IT)
  Receive Date: 20190703
  Receipt Date: 20190703
  Transmission Date: 20191004
  Serious: Yes (Death)
  Sender: FDA-Public Use
  Company Number: IT-ROCHE-2348592

PATIENT
  Age: 85 Year
  Sex: Female

DRUGS (3)
  1. CHLORAMBUCIL [Suspect]
     Active Substance: CHLORAMBUCIL
     Indication: ANAEMIA
     Route: 065
     Dates: start: 2016
  2. RITUXIMAB. [Suspect]
     Active Substance: RITUXIMAB
     Indication: ANAEMIA
     Route: 065
     Dates: start: 2016
  3. IBRUTINIB [Suspect]
     Active Substance: IBRUTINIB
     Indication: ANAEMIA
     Route: 065

REACTIONS (1)
  - Encephalitis viral [Fatal]
